FAERS Safety Report 14834079 (Version 1)
Quarter: 2018Q2

REPORT INFORMATION
  Report Type: Spontaneous
  Country: US (occurrence: US)
  Receive Date: 20180501
  Receipt Date: 20180501
  Transmission Date: 20180711
  Serious: No
  Sender: FDA-Public Use
  Company Number: US-ROCHE-2022219

PATIENT
  Sex: Female

DRUGS (1)
  1. AVASTIN [Suspect]
     Active Substance: BEVACIZUMAB
     Indication: NEOPLASM MALIGNANT
     Dosage: INFUSE 1125 MG INTRAVENOUSLY
     Route: 042
     Dates: start: 20170621, end: 20171106

REACTIONS (2)
  - Disease progression [Unknown]
  - Drug ineffective [Unknown]
